FAERS Safety Report 24237498 (Version 1)
Quarter: 2024Q3

REPORT INFORMATION
  Report Type: Spontaneous
  Country: US (occurrence: None)
  Receive Date: 20240821
  Receipt Date: 20240821
  Transmission Date: 20241017
  Serious: Yes (Other)
  Sender: Public
  Company Number: None

PATIENT
  Age: 34 Year
  Sex: Male
  Weight: 60.75 kg

DRUGS (1)
  1. LEVOFLOXACIN [Suspect]
     Active Substance: LEVOFLOXACIN
     Indication: Testicular disorder
     Dosage: OTHER QUANTITY : 1 TABLET(S);?FREQUENCY : DAILY;?
     Route: 048
     Dates: start: 20240806, end: 20240815

REACTIONS (8)
  - Haematochezia [None]
  - Paraplegia [None]
  - Wheelchair user [None]
  - Procedural pain [None]
  - Gastrointestinal disorder [None]
  - Abdominal rigidity [None]
  - Hyperhidrosis [None]
  - Quality of life decreased [None]

NARRATIVE: CASE EVENT DATE: 20240817
